FAERS Safety Report 21676697 (Version 1)
Quarter: 2022Q4

REPORT INFORMATION
  Report Type: Spontaneous
  Country: DK (occurrence: DK)
  Receive Date: 20221202
  Receipt Date: 20221202
  Transmission Date: 20230113
  Serious: Yes (Life-Threatening)
  Sender: FDA-Public Use
  Company Number: None

PATIENT
  Age: 64 Year
  Sex: Female
  Weight: 60 kg

DRUGS (5)
  1. EVENITY [Suspect]
     Active Substance: ROMOSOZUMAB-AQQG
     Indication: Osteoporosis
     Dosage: THIRD DOSE GIVEN ON 10NOV2022.STRENGTH: 105 MG
     Route: 065
     Dates: start: 202209, end: 20221117
  2. CETIRIZINE HYDROCHLORIDE [Concomitant]
     Active Substance: CETIRIZINE HYDROCHLORIDE
     Indication: Hypersensitivity
     Dosage: UNK
     Dates: start: 20150827
  3. ESOMEPRAZOLE [Concomitant]
     Active Substance: ESOMEPRAZOLE
     Indication: Gastric pH decreased
     Dosage: UNK
     Dates: start: 20200120
  4. Gemadol [Concomitant]
     Indication: Pain
     Dosage: UNK
     Dates: start: 20221004
  5. PARACETAMOL ORIFARM [Concomitant]
     Indication: Pain
     Dosage: UNK
     Dates: start: 20210101

REACTIONS (4)
  - Syncope [Recovered/Resolved]
  - Anaphylactic shock [Recovered/Resolved]
  - Palpitations [Unknown]
  - Cold sweat [Unknown]

NARRATIVE: CASE EVENT DATE: 20221110
